FAERS Safety Report 17051101 (Version 2)
Quarter: 2025Q2

REPORT INFORMATION
  Report Type: Spontaneous
  Country: QA (occurrence: QA)
  Receive Date: 20191120
  Receipt Date: 20250507
  Transmission Date: 20250717
  Serious: Yes (Other)
  Sender: RANBAXY
  Company Number: QA-SUN PHARMACEUTICAL INDUSTRIES LTD-2019R1-210380

PATIENT
  Age: 33 Year
  Sex: Female

DRUGS (7)
  1. PIPERACILLIN SODIUM\TAZOBACTAM SODIUM [Suspect]
     Active Substance: PIPERACILLIN SODIUM\TAZOBACTAM SODIUM
     Indication: Urinary tract infection pseudomonal
     Dosage: 4.5 MILLIGRAM, TID
     Route: 042
  2. RANITIDINE [Suspect]
     Active Substance: RANITIDINE
     Indication: Product used for unknown indication
     Dosage: 150 MILLIGRAM, QD
     Route: 065
  3. PROGESTERONE [Suspect]
     Active Substance: PROGESTERONE
     Indication: Product used for unknown indication
     Dosage: 400 MILLIGRAM, BID
     Route: 067
  4. ERYTHROMYCIN [Suspect]
     Active Substance: ERYTHROMYCIN
     Indication: Preterm premature rupture of membranes
     Dosage: 250 MILLIGRAM, 6DOSE/DAY
     Route: 048
  5. ENOXAPARIN SODIUM [Suspect]
     Active Substance: ENOXAPARIN SODIUM
     Indication: Thrombosis prophylaxis
     Dosage: 40 MILLIGRAM, QD
     Route: 058
  6. BETAMETHASONE [Suspect]
     Active Substance: BETAMETHASONE
     Indication: Maternal therapy to enhance foetal lung maturity
     Dosage: 12 MILLIGRAM, DAILY
     Route: 030
  7. FERROUS FUMARATE [Suspect]
     Active Substance: FERROUS FUMARATE
     Indication: Product used for unknown indication
     Dosage: 65 MILLIGRAM, BID
     Route: 048

REACTIONS (7)
  - Myelosuppression [Recovered/Resolved]
  - Leukopenia [Recovered/Resolved]
  - Neutropenia [Recovered/Resolved]
  - Thrombocytopenia [Recovered/Resolved]
  - Premature delivery [Unknown]
  - Pyrexia [Recovered/Resolved]
  - Exposure during pregnancy [Unknown]
